FAERS Safety Report 4940645-3 (Version None)
Quarter: 2006Q1

REPORT INFORMATION
  Report Type: 
  Country: None (occurrence: None)
  Receive Date: 20060206
  Receipt Date: 20060405
  Transmission Date: 20060701
  Serious: Yes (Hospitalization)
  Sender: FDA-Public Use
  Company Number: MEDI-0003123

PATIENT
  Age: 70 Year
  Sex: Male
  Weight: 79.3795 kg

DRUGS (19)
  1. ETHYOL [Suspect]
     Indication: RADIOTHERAPY
     Dosage: 500 MG, 5 IN 1 WK, SUBCUTANEOUS
     Route: 058
     Dates: start: 20050321, end: 20050404
  2. RADIATION THERAPY [Concomitant]
  3. CARBOPLATIN [Concomitant]
  4. TAXOL [Concomitant]
  5. ETOPOSIDE [Concomitant]
  6. PROTONIX [Concomitant]
  7. LOTREL [Concomitant]
  8. COMBIVENT (IPPRATROPIUM BROMIDE, SALBUTAMOL SULFATE) [Concomitant]
  9. ALLOPURINOL [Concomitant]
  10. HEMOCYTE PLUS (FOLIC ACID, SODIUM ASCORBATE, FERROUS FUMARATE, VITAMIN [Concomitant]
  11. BETOPTIC [Concomitant]
  12. AZOPT [Concomitant]
  13. ALPHAGAN [Concomitant]
  14. ZOFRAN [Concomitant]
  15. COMPAZINE [Concomitant]
  16. SENOKOT [Concomitant]
  17. DEXAMETHASONE [Concomitant]
  18. DOXAZOSIN [Concomitant]
  19. SWAMP JUICE [Concomitant]

REACTIONS (7)
  - BLOOD GASES ABNORMAL [None]
  - DYSPNOEA [None]
  - FIBRIN D DIMER INCREASED [None]
  - HYPOTENSION [None]
  - SPUTUM CULTURE POSITIVE [None]
  - STRIDOR [None]
  - TACHYCARDIA [None]
